APPROVED DRUG PRODUCT: DERMA-SMOOTHE/FS
Active Ingredient: FLUOCINOLONE ACETONIDE
Strength: 0.01%
Dosage Form/Route: OIL;TOPICAL
Application: N019452 | Product #001 | TE Code: AT
Applicant: HILL DERMACEUTICALS INC
Approved: Feb 3, 1988 | RLD: Yes | RS: Yes | Type: RX